FAERS Safety Report 7310809-2 (Version None)
Quarter: 2011Q1

REPORT INFORMATION
  Report Type: 
  Country: None (occurrence: None)
  Receive Date: 20110224
  Receipt Date: 20110214
  Transmission Date: 20110831
  Serious: Yes (Hospitalization)
  Sender: FDA-Public Use
  Company Number: PHHY2011US12016

PATIENT
  Sex: Female

DRUGS (6)
  1. IBUPROFEN [Concomitant]
  2. RECLAST [Suspect]
     Dosage: 5 MG, ONCE YEARLY
     Dates: start: 20110131
  3. TAPAZOLE [Concomitant]
  4. TYLENOL [Concomitant]
  5. PREDNISONE [Concomitant]
  6. TOPROL-XL [Concomitant]

REACTIONS (25)
  - TACHYCARDIA [None]
  - RENAL DISORDER [None]
  - DYSURIA [None]
  - TREMOR [None]
  - ASTHENIA [None]
  - PYREXIA [None]
  - CHILLS [None]
  - NODULE [None]
  - WHITE BLOOD CELL COUNT INCREASED [None]
  - OEDEMA PERIPHERAL [None]
  - BLOOD PRESSURE INCREASED [None]
  - CHEST DISCOMFORT [None]
  - DYSPNOEA [None]
  - FATIGUE [None]
  - ARTHRALGIA [None]
  - MYALGIA [None]
  - MUSCULOSKELETAL STIFFNESS [None]
  - CHEST PAIN [None]
  - DIARRHOEA [None]
  - BONE PAIN [None]
  - PAIN IN EXTREMITY [None]
  - PAIN [None]
  - ARTHROPATHY [None]
  - ABASIA [None]
  - ERYTHEMA [None]
